FAERS Safety Report 5804050-X (Version None)
Quarter: 2008Q3

REPORT INFORMATION
  Report Type: 
  Country: None (occurrence: None)
  Receive Date: 20080703
  Receipt Date: 20080421
  Transmission Date: 20090109
  Serious: Yes (Other)
  Sender: FDA-Public Use
  Company Number: PHEH2008US03984

PATIENT

DRUGS (3)
  1. PROLEUKIN [Suspect]
     Indication: ACUTE LYMPHOCYTIC LEUKAEMIA
     Dosage: SUBCUTANEOUS
     Route: 058
  2. LEUKINE [Concomitant]
  3. ANTINEOPLASTIC AGENTS (NO INGREDIENTS/SUBSTANCES) [Concomitant]

REACTIONS (4)
  - ERYTHEMA [None]
  - PAIN OF SKIN [None]
  - PALLOR [None]
  - SKIN BURNING SENSATION [None]
